FAERS Safety Report 11254925 (Version 1)
Quarter: 2015Q3

REPORT INFORMATION
  Report Type: Spontaneous
  Country: US (occurrence: US)
  Receive Date: 20150709
  Receipt Date: 20150709
  Transmission Date: 20151125
  Serious: Yes (Death)
  Sender: FDA-Public Use
  Company Number: US-SEBELA IRELAND LTD.-2015SEB00049

PATIENT
  Sex: Female

DRUGS (1)
  1. PRAMOSONE [Suspect]
     Active Substance: HYDROCORTISONE ACETATE\PRAMOXINE HYDROCHLORIDE
     Indication: INFECTION

REACTIONS (1)
  - Death [Fatal]
